FAERS Safety Report 6295434-7 (Version None)
Quarter: 2009Q3

REPORT INFORMATION
  Report Type: 
  Country: None (occurrence: None)
  Receive Date: 20090730
  Receipt Date: 20090718
  Transmission Date: 20100115
  Serious: Yes (Hospitalization)
  Sender: FDA-Public Use
  Company Number: 8049408

PATIENT
  Sex: Male

DRUGS (4)
  1. KEPPRA [Suspect]
     Dosage: PO
     Route: 048
     Dates: start: 20090718
  2. LAMOTRIGINE [Suspect]
     Dosage: 100 MG 2/D PO
     Route: 048
     Dates: end: 20090716
  3. LAMOTRIGINE [Suspect]
     Dosage: 600 MG /D PO
     Route: 048
     Dates: start: 20090717, end: 20090717
  4. LAMOTRIGINE [Suspect]
     Dosage: 500 MG 2/D PO
     Route: 048
     Dates: start: 20090718

REACTIONS (3)
  - IATROGENIC INJURY [None]
  - INCORRECT DOSE ADMINISTERED [None]
  - VISUAL IMPAIRMENT [None]
